FAERS Safety Report 19451009 (Version 1)
Quarter: 2021Q2

REPORT INFORMATION
  Report Type: Spontaneous
  Country: CN (occurrence: CN)
  Receive Date: 20210622
  Receipt Date: 20210622
  Transmission Date: 20210717
  Serious: Yes (Hospitalization, Disabling)
  Sender: FDA-Public Use
  Company Number: CN-BAYER-2021-161574

PATIENT
  Age: 52 Year
  Sex: Female
  Weight: 40 kg

DRUGS (2)
  1. STIVARGA [Suspect]
     Active Substance: REGORAFENIB
     Indication: TARGETED CANCER THERAPY
     Dosage: 80 MG, QD
     Route: 048
     Dates: start: 20210428, end: 20210527
  2. STIVARGA [Suspect]
     Active Substance: REGORAFENIB
     Indication: COLON CANCER

REACTIONS (4)
  - Frequent bowel movements [None]
  - Metastases to liver [None]
  - Drug-induced liver injury [Recovering/Resolving]
  - Off label use [None]

NARRATIVE: CASE EVENT DATE: 20210428
